FAERS Safety Report 14511700 (Version 1)
Quarter: 2018Q1

REPORT INFORMATION
  Report Type: Spontaneous
  Country: US (occurrence: US)
  Receive Date: 20180209
  Receipt Date: 20180209
  Transmission Date: 20180509
  Serious: Yes (Other)
  Sender: FDA-Public Use
  Company Number: US-BRACCO-2018US00637

PATIENT
  Sex: Female

DRUGS (9)
  1. GADAVIST [Suspect]
     Active Substance: GADOBUTROL
     Indication: DIAGNOSTIC PROCEDURE
     Route: 042
  2. EOVIST [Suspect]
     Active Substance: GADOXETATE DISODIUM
     Indication: DIAGNOSTIC PROCEDURE
     Route: 042
  3. MAGNEVIST [Suspect]
     Active Substance: GADOPENTETATE DIMEGLUMINE
     Indication: DIAGNOSTIC PROCEDURE
     Route: 042
  4. OMNISCAN [Suspect]
     Active Substance: GADODIAMIDE
     Indication: DIAGNOSTIC PROCEDURE
     Route: 042
  5. ABLAVAR [Suspect]
     Active Substance: GADOFOSVESET TRISODIUM
     Indication: DIAGNOSTIC PROCEDURE
     Route: 042
  6. PROHANCE [Suspect]
     Active Substance: GADOTERIDOL
     Indication: DIAGNOSTIC PROCEDURE
     Route: 042
  7. MULTIHANCE [Suspect]
     Active Substance: GADOBENATE DIMEGLUMINE
     Indication: DIAGNOSTIC PROCEDURE
     Route: 042
  8. DOTAREM [Suspect]
     Active Substance: GADOTERATE MEGLUMINE
     Indication: DIAGNOSTIC PROCEDURE
     Route: 042
  9. OPTIMARK [Suspect]
     Active Substance: GADOVERSETAMIDE
     Indication: DIAGNOSTIC PROCEDURE
     Route: 042

REACTIONS (3)
  - Emotional distress [Unknown]
  - Hypersensitivity [Unknown]
  - Injury [Unknown]

NARRATIVE: CASE EVENT DATE: 20170113
